FAERS Safety Report 9215457 (Version 1)
Quarter: 2013Q2

REPORT INFORMATION
  Report Type: Spontaneous
  Country: JP (occurrence: JP)
  Receive Date: 20130405
  Receipt Date: 20130405
  Transmission Date: 20140414
  Serious: Yes (Death, Hospitalization)
  Sender: FDA-Public Use
  Company Number: JP-MERCK-1303JPN013660

PATIENT
  Age: 71 Year
  Sex: Male

DRUGS (4)
  1. TIENAM [Suspect]
     Indication: MYCOBACTERIUM ABSCESSUS INFECTION
     Dosage: 1.5 G, QD
     Route: 042
     Dates: start: 2012
  2. TIENAM [Suspect]
     Indication: MYCOBACTERIUM KANSASII INFECTION
  3. TIENAM [Suspect]
     Indication: MYCOBACTERIUM AVIUM COMPLEX INFECTION
  4. AMIKACIN [Concomitant]
     Dosage: 300 MG, QD
     Route: 042

REACTIONS (5)
  - Drug ineffective [Fatal]
  - Respiratory failure [Fatal]
  - Bullous lung disease [None]
  - Pulmonary cavitation [None]
  - Condition aggravated [None]
